FAERS Safety Report 5630607-5 (Version None)
Quarter: 2008Q1

REPORT INFORMATION
  Report Type: 
  Country: None (occurrence: None)
  Receive Date: 20080219
  Receipt Date: 20080205
  Transmission Date: 20080703
  Serious: Yes (Disabling)
  Sender: FDA-Public Use
  Company Number: GB-AVENTIS-200721062GDDC

PATIENT
  Age: 62 Year
  Sex: Male

DRUGS (10)
  1. LANTUS [Suspect]
     Route: 058
     Dates: start: 20070901, end: 20071001
  2. ATENOLOL [Suspect]
  3. ATORVASTATIN CALCIUM [Concomitant]
  4. AMLODIPINE [Concomitant]
  5. CARDIOVASCULAR SYSTEM DRUGS [Concomitant]
  6. HUMALOG [Concomitant]
     Dosage: FREQUENCY: BEFORE MEALS
     Route: 058
  7. ASPIRIN [Concomitant]
  8. NICORANDIL [Concomitant]
  9. TRANDOLAPRIL [Concomitant]
  10. CLOPIDOGREL [Concomitant]

REACTIONS (4)
  - ERYTHEMA [None]
  - IMPAIRED HEALING [None]
  - PRURITUS [None]
  - URTICARIA [None]
